FAERS Safety Report 6394775-2 (Version None)
Quarter: 2009Q4

REPORT INFORMATION
  Report Type: 
  Country: None (occurrence: None)
  Receive Date: 20091009
  Receipt Date: 20090822
  Transmission Date: 20100525
  Serious: No
  Sender: FDA-Public Use
  Company Number: US-BAYER-200931307NA

PATIENT
  Age: 19 Year
  Sex: Female

DRUGS (1)
  1. MIRENA [Suspect]
     Indication: CONTRACEPTION
     Route: 015
     Dates: start: 20070901

REACTIONS (5)
  - CLITORIS ABSCESS [None]
  - INFECTION [None]
  - MUSCLE SPASMS [None]
  - VAGINAL NEOPLASM [None]
  - VULVOVAGINAL BURNING SENSATION [None]
